FAERS Safety Report 7871691-8 (Version None)
Quarter: 2011Q4

REPORT INFORMATION
  Report Type: 
  Country: None (occurrence: None)
  Receive Date: 20111014
  Receipt Date: 20110404
  Transmission Date: 20120403
  Serious: Yes (Hospitalization)
  Sender: FDA-Public Use
  Company Number: AXC-2011-000127

PATIENT
  Age: 85 Year
  Sex: Female

DRUGS (1)
  1. CARAFATE [Suspect]
     Indication: GASTRIC ULCER
     Dosage: ORAL
     Route: 048
     Dates: start: 20110101

REACTIONS (1)
  - BEZOAR [None]
